FAERS Safety Report 24411650 (Version 2)
Quarter: 2024Q4

REPORT INFORMATION
  Report Type: Report from Study
  Country: US (occurrence: US)
  Receive Date: 20241008
  Receipt Date: 20241022
  Transmission Date: 20250115
  Serious: Yes (Hospitalization, Other)
  Sender: MERCK
  Company Number: US-009507513-2410USA000630

PATIENT
  Sex: Female
  Weight: 117.9 kg

DRUGS (30)
  1. SOTATERCEPT [Suspect]
     Active Substance: SOTATERCEPT
     Dosage: 0.7 MILLILITER, Q3W, STRENGTH: 45 MG
     Dates: start: 20240912, end: 2024
  2. TREPROSTINIL SODIUM [Concomitant]
     Active Substance: TREPROSTINIL SODIUM
     Indication: Pulmonary arterial hypertension
     Dosage: 0.029 MICROGRAM PER KILOGRAM, CONTINOUS
     Route: 042
     Dates: start: 20240307
  3. VITAMIN D2 [Concomitant]
     Active Substance: ERGOCALCIFEROL
  4. METOPROLOL TARTRATE [Concomitant]
     Active Substance: METOPROLOL TARTRATE
  5. AMITRIPTYLINE HYDROCHLORIDE [Concomitant]
     Active Substance: AMITRIPTYLINE HYDROCHLORIDE
  6. ZYRTEC [Concomitant]
     Active Substance: CETIRIZINE HYDROCHLORIDE
  7. TYLENOL EXTRA STRENGTH [Concomitant]
     Active Substance: ACETAMINOPHEN
  8. OXYCODONE HYDROCHLORIDE [Concomitant]
     Active Substance: OXYCODONE HYDROCHLORIDE
  9. ALBUTEROL SULFATE [Concomitant]
     Active Substance: ALBUTEROL SULFATE
  10. PANTOPRAZOLE SODIUM [Concomitant]
     Active Substance: PANTOPRAZOLE SODIUM
  11. CLONAZEPAM [Concomitant]
     Active Substance: CLONAZEPAM
  12. POTASSIUM CHLORIDE [Concomitant]
     Active Substance: POTASSIUM CHLORIDE
  13. MUCINEX [Concomitant]
     Active Substance: GUAIFENESIN
  14. SYMBICORT [Concomitant]
     Active Substance: BUDESONIDE\FORMOTEROL FUMARATE DIHYDRATE
  15. FLUTICASONE PROPIONATE [Concomitant]
     Active Substance: FLUTICASONE PROPIONATE
  16. IMODIUM A-D [Concomitant]
     Active Substance: LOPERAMIDE HYDROCHLORIDE
  17. SPIRONOLACTONE [Concomitant]
     Active Substance: SPIRONOLACTONE
  18. OXYGEN [Concomitant]
     Active Substance: OXYGEN
  19. BUMETANIDE [Concomitant]
     Active Substance: BUMETANIDE
  20. MONTELUKAST SODIUM [Concomitant]
     Active Substance: MONTELUKAST SODIUM
  21. COLCHICINE [Concomitant]
     Active Substance: COLCHICINE
  22. DEXAMETHASONE [Concomitant]
     Active Substance: DEXAMETHASONE
  23. ONDANSETRON HYDROCHLORIDE [Concomitant]
     Active Substance: ONDANSETRON HYDROCHLORIDE
  24. CYMBALTA [Concomitant]
     Active Substance: DULOXETINE HYDROCHLORIDE
  25. SODIUM CHLORIDE [Concomitant]
     Active Substance: SODIUM CHLORIDE
  26. METOLAZONE [Concomitant]
     Active Substance: METOLAZONE
  27. STERILE WATER [Concomitant]
     Active Substance: WATER
  28. AMBRISENTAN [Concomitant]
     Active Substance: AMBRISENTAN
  29. OMEPRAZOLE [Concomitant]
     Active Substance: OMEPRAZOLE
  30. REMODULIN [Concomitant]
     Active Substance: TREPROSTINIL

REACTIONS (4)
  - Pneumonia [Unknown]
  - Loss of consciousness [Unknown]
  - Atrial flutter [Unknown]
  - Ill-defined disorder [Unknown]

NARRATIVE: CASE EVENT DATE: 20240101
